FAERS Safety Report 10071179 (Version 1)
Quarter: 2014Q2

REPORT INFORMATION
  Report Type: Spontaneous
  Country: US (occurrence: US)
  Receive Date: 20140410
  Receipt Date: 20140410
  Transmission Date: 20141212
  Serious: No
  Sender: FDA-Public Use
  Company Number: US-BAYER-2014-050443

PATIENT
  Age: 69 Year
  Sex: Female
  Weight: 77.1 kg

DRUGS (5)
  1. BAYER GENUINE ASPIRIN ORIGINAL STRENGTH [Suspect]
     Indication: ANALGESIC THERAPY
     Dosage: 2 DF, ONCE
     Route: 048
  2. ALEVE CAPLET [Suspect]
     Indication: BACK PAIN
     Dosage: 1 DF, PRN MORE THAN 10 CONSECUTIVE DAYS
     Route: 048
  3. COZAAR [Concomitant]
  4. SYNTHROID [Concomitant]
  5. VITAMIN B12 NOS [Concomitant]

REACTIONS (3)
  - Dyspepsia [Recovered/Resolved]
  - Incorrect drug administration duration [None]
  - Dyspepsia [Recovered/Resolved]
